FAERS Safety Report 8492402-1 (Version None)
Quarter: 2012Q3

REPORT INFORMATION
  Report Type: 
  Country: None (occurrence: None)
  Receive Date: 20120706
  Receipt Date: 20120627
  Transmission Date: 20120928
  Serious: Yes (Hospitalization)
  Sender: FDA-Public Use
  Company Number: JP-ELI_LILLY_AND_COMPANY-JP201207000582

PATIENT
  Sex: Female
  Weight: 60.5 kg

DRUGS (1)
  1. PRASUGREL HYDROCHLORIDE [Suspect]
     Indication: ISCHAEMIC STROKE
     Dosage: UNK, QD
     Route: 048
     Dates: start: 20120320

REACTIONS (1)
  - CONVULSION [None]
